FAERS Safety Report 7215078-X (Version None)
Quarter: 2011Q1

REPORT INFORMATION
  Report Type: 
  Country: None (occurrence: None)
  Receive Date: 20110107
  Receipt Date: 20100812
  Transmission Date: 20110831
  Serious: No
  Sender: FDA-Public Use
  Company Number: A0875581A

PATIENT
  Age: 56 Year
  Sex: Male

DRUGS (2)
  1. MULTIVITAMIN [Concomitant]
  2. LOVAZA [Suspect]
     Dosage: 1VA PER DAY
     Route: 048
     Dates: start: 20100726

REACTIONS (1)
  - BLOOD CHOLESTEROL INCREASED [None]
